FAERS Safety Report 16755966 (Version 3)
Quarter: 2020Q2

REPORT INFORMATION
  Report Type: Spontaneous
  Country: US (occurrence: US)
  Receive Date: 20190829
  Receipt Date: 20200526
  Transmission Date: 20200713
  Serious: No
  Sender: FDA-Public Use
  Company Number: US-TEVA-2019-US-1100292

PATIENT
  Sex: Female

DRUGS (6)
  1. OPIOIDS [Concomitant]
     Active Substance: UNSPECIFIED INGREDIENT
     Route: 065
  2. ACEI [Concomitant]
     Route: 065
  3. NSAID^S [Concomitant]
     Active Substance: UNSPECIFIED INGREDIENT
     Route: 065
  4. ASA [Concomitant]
     Active Substance: ASPIRIN
     Route: 065
  5. QVAR REDIHALER [Suspect]
     Active Substance: BECLOMETHASONE DIPROPIONATE
     Indication: ASTHMA
     Route: 065
  6. PENICILLIN [Concomitant]
     Active Substance: PENICILLIN
     Route: 065

REACTIONS (4)
  - Pharyngeal swelling [Unknown]
  - Chest discomfort [Recovered/Resolved]
  - Drug ineffective [Unknown]
  - Neck pain [Unknown]
